FAERS Safety Report 10309730 (Version 2)
Quarter: 2014Q3

REPORT INFORMATION
  Report Type: Report from Study
  Country: US (occurrence: US)
  Receive Date: 20140717
  Receipt Date: 20140820
  Transmission Date: 20150326
  Serious: Yes (Other)
  Sender: FDA-Public Use
  Company Number: US-BIOGENIDEC-2014BI069798

PATIENT
  Age: 60 Year
  Sex: Female

DRUGS (1)
  1. TYSABRI [Suspect]
     Active Substance: NATALIZUMAB
     Indication: MULTIPLE SCLEROSIS
     Route: 042
     Dates: start: 20120503

REACTIONS (12)
  - Knee arthroplasty [Recovered/Resolved]
  - Thrombosis [Recovered/Resolved]
  - Aphasia [Recovered/Resolved]
  - Central nervous system lesion [Not Recovered/Not Resolved]
  - Drug dose omission [Unknown]
  - Memory impairment [Recovered/Resolved]
  - General symptom [Unknown]
  - Factor V Leiden mutation [Not Recovered/Not Resolved]
  - Methylenetetrahydrofolate reductase gene mutation [Not Recovered/Not Resolved]
  - Musculoskeletal disorder [Recovered/Resolved]
  - Dysstasia [Recovered/Resolved]
  - Abasia [Recovered/Resolved]

NARRATIVE: CASE EVENT DATE: 20140623
